FAERS Safety Report 15410855 (Version 1)
Quarter: 2018Q3

REPORT INFORMATION
  Report Type: Spontaneous
  Country: US (occurrence: US)
  Receive Date: 20180919
  Receipt Date: 20180919
  Transmission Date: 20181010
  Serious: Yes (Disabling)
  Sender: FDA-Public Use
  Company Number: None

PATIENT
  Age: 65 Year
  Sex: Female
  Weight: 54.43 kg

DRUGS (8)
  1. EDTA CHELATION [Concomitant]
  2. TUMERIC [Concomitant]
     Active Substance: HERBALS\TURMERIC
  3. L?LYSINE [Concomitant]
     Active Substance: LYSINE
  4. ACETOMENAPHINE [Concomitant]
  5. VITAMIN B12 [Concomitant]
     Active Substance: CYANOCOBALAMIN
  6. VALACYCLOVIR [Concomitant]
     Active Substance: VALACYCLOVIR HYDROCHLORIDE
  7. ANDROGRAPHIS PLUS [Concomitant]
  8. GADAVIST [Suspect]
     Active Substance: GADOBUTROL

REACTIONS (7)
  - Eye irritation [None]
  - Contrast media deposition [None]
  - Eye swelling [None]
  - Swelling face [None]
  - Swelling [None]
  - Drug screen positive [None]
  - Burning sensation [None]

NARRATIVE: CASE EVENT DATE: 20180210
